FAERS Safety Report 5663846-8 (Version None)
Quarter: 2008Q1

REPORT INFORMATION
  Report Type: 
  Country: None (occurrence: None)
  Receive Date: 20080311
  Receipt Date: 20080303
  Transmission Date: 20080703
  Serious: Yes (Hospitalization)
  Sender: FDA-Public Use
  Company Number: URSO-2008-027

PATIENT
  Age: 75 Year
  Sex: Male

DRUGS (7)
  1. URSO 250 [Suspect]
     Indication: HEPATIC FUNCTION ABNORMAL
     Dosage: 600 MG ORAL
     Route: 048
     Dates: start: 20071222, end: 20071224
  2. CALONAL (ACETAMINOPHEN) [Suspect]
     Dosage: ORAL
     Route: 048
     Dates: start: 20071210, end: 20071215
  3. OZEX (TOSUFLOXACINTOSILATE) [Suspect]
     Dosage: ORAL
     Route: 048
     Dates: start: 20071210, end: 20071215
  4. LEVOFLOXACIN [Suspect]
     Dosage: 3 TAB ORAL
     Route: 048
     Dates: start: 20071222, end: 20071224
  5. STEROID THERAPY [Concomitant]
  6. MAXIPIME (CEFEPIME DIHYDROCHLORIDE) [Concomitant]
  7. MINOCYCLINE HCL [Concomitant]

REACTIONS (1)
  - INTERSTITIAL LUNG DISEASE [None]
